FAERS Safety Report 10520223 (Version 1)
Quarter: 2014Q4

REPORT INFORMATION
  Report Type: Spontaneous
  Country: US (occurrence: US)
  Receive Date: 20141015
  Receipt Date: 20141015
  Transmission Date: 20150528
  Serious: Yes (Other)
  Sender: FDA-Public Use
  Company Number: US-BAYER-2014-150508

PATIENT
  Age: 61 Year
  Sex: Male
  Weight: 82 kg

DRUGS (3)
  1. ALEVE [Suspect]
     Active Substance: NAPROXEN SODIUM
     Indication: JOINT SWELLING
  2. ALEVE [Suspect]
     Active Substance: NAPROXEN SODIUM
     Indication: ARTHRALGIA
     Dosage: 2 DF, BID  (Q12H)
     Route: 048
     Dates: start: 20140823, end: 20140830
  3. CENTRUM [MINERALS NOS,VITAMINS NOS] [Concomitant]

REACTIONS (2)
  - Asthenia [Not Recovered/Not Resolved]
  - Intentional product misuse [None]

NARRATIVE: CASE EVENT DATE: 20140823
